FAERS Safety Report 13322577 (Version 2)
Quarter: 2017Q1

REPORT INFORMATION
  Report Type: Report from Study
  Country: CO (occurrence: CO)
  Receive Date: 20170310
  Receipt Date: 20170329
  Transmission Date: 20170428
  Serious: Yes (Death)
  Sender: FDA-Public Use
  Company Number: CO-ACTELION-A-CH2017-150640

PATIENT
  Age: 41 Year
  Sex: Female

DRUGS (1)
  1. OPSUMIT [Suspect]
     Active Substance: MACITENTAN
     Indication: PULMONARY ARTERIAL HYPERTENSION
     Dosage: UNK
     Route: 048
     Dates: start: 20160711, end: 20170216

REACTIONS (2)
  - Arterial rupture [Fatal]
  - Haemorrhage [Fatal]

NARRATIVE: CASE EVENT DATE: 20170216
